FAERS Safety Report 4264883-0 (Version None)
Quarter: 2004Q1

REPORT INFORMATION
  Report Type: 
  Country: None (occurrence: None)
  Receive Date: 20040105
  Receipt Date: 20031224
  Transmission Date: 20041129
  Serious: Yes (Hospitalization)
  Sender: FDA-Public Use
  Company Number: K200301937

PATIENT
  Age: 21 Year
  Sex: Male

DRUGS (3)
  1. SONATA [Suspect]
     Dosage: 20 TABLETS, SINGLE, ORAL
     Route: 048
     Dates: start: 20031220, end: 20031220
  2. TAVOR (LORAZEPAM) 0.5MG [Suspect]
     Dosage: 20 TABLETS, SINGLE, ORAL
     Route: 048
     Dates: start: 20031220, end: 20031220
  3. ZOLPIDEM (ZOLPIDEM) 10MG [Suspect]
     Dosage: 40 TABLETS, SINGLE, ORAL
     Route: 048
     Dates: start: 20031220, end: 20031220

REACTIONS (2)
  - FATIGUE [None]
  - INTENTIONAL OVERDOSE [None]
